FAERS Safety Report 24445277 (Version 1)
Quarter: 2024Q4

REPORT INFORMATION
  Report Type: Spontaneous
  Country: US (occurrence: None)
  Receive Date: 20241015
  Receipt Date: 20241015
  Transmission Date: 20250114
  Serious: Yes (Other)
  Sender: Public
  Company Number: None

PATIENT
  Age: 77 Year
  Sex: Female
  Weight: 103.5 kg

DRUGS (6)
  1. OZEMPIC [Suspect]
     Active Substance: SEMAGLUTIDE
     Indication: Type 2 diabetes mellitus
     Dosage: OTHER QUANTITY : 1 INJECTION(S);?OTHER FREQUENCY : ONCE A WEEK;?
     Route: 058
     Dates: start: 20230818, end: 20241011
  2. ATORVASTATIN CALCIUM [Concomitant]
     Active Substance: ATORVASTATIN CALCIUM
  3. ATENOLOL [Concomitant]
     Active Substance: ATENOLOL
  4. LANSOPRAZOLE [Concomitant]
     Active Substance: LANSOPRAZOLE
  5. Antarctic Krill oil [Concomitant]
  6. Bayer 81 MG baby aspirin [Concomitant]

REACTIONS (5)
  - Bowel movement irregularity [None]
  - Pain [None]
  - Mucous stools [None]
  - Flatulence [None]
  - Abdominal pain lower [None]

NARRATIVE: CASE EVENT DATE: 20241001
